FAERS Safety Report 20801008 (Version 5)
Quarter: 2023Q1

REPORT INFORMATION
  Report Type: Report from Study
  Country: US (occurrence: US)
  Receive Date: 20220509
  Receipt Date: 20230117
  Transmission Date: 20230418
  Serious: Yes (Hospitalization, Other)
  Sender: FDA-Public Use
  Company Number: US-ABBVIE-22K-163-4382684-00

PATIENT
  Age: 62 Year
  Sex: Female
  Weight: 54.431 kg

DRUGS (10)
  1. HUMIRA [Suspect]
     Active Substance: ADALIMUMAB
     Indication: Crohn^s disease
     Dosage: CITRATE FREE,?FORM STRENGTH: 40 MILLIGRAM
     Route: 058
     Dates: start: 202203
  2. HUMIRA [Suspect]
     Active Substance: ADALIMUMAB
     Dosage: CITRATE FREE,?FORM STRENGTH: 40 MILLIGRAM
     Route: 058
  3. VITAMIN D [Concomitant]
     Active Substance: VITAMIN D NOS
     Indication: Vitamin supplementation
  4. VITAMIN C [Concomitant]
     Active Substance: ASCORBIC ACID
     Indication: Vitamin supplementation
  5. PRADAXA [Concomitant]
     Active Substance: DABIGATRAN ETEXILATE MESYLATE
     Indication: Product used for unknown indication
  6. VITAMIN B12 [Concomitant]
     Active Substance: CYANOCOBALAMIN
     Indication: Vitamin supplementation
  7. OMEGA 3 [Concomitant]
     Active Substance: CAPSAICIN
     Indication: Supplementation therapy
  8. IRON [Concomitant]
     Active Substance: IRON
     Indication: Mineral supplementation
  9. MELATONIN [Concomitant]
     Active Substance: MELATONIN
     Indication: Supplementation therapy
  10. MINOXIDIL [Concomitant]
     Active Substance: MINOXIDIL
     Indication: Alopecia

REACTIONS (7)
  - Small intestinal obstruction [Recovered/Resolved]
  - Sinusitis [Recovering/Resolving]
  - Small intestinal obstruction [Recovered/Resolved]
  - Small intestinal obstruction [Recovered/Resolved]
  - Abdominal adhesions [Unknown]
  - Ileal stenosis [Unknown]
  - Small intestinal obstruction [Recovered/Resolved]

NARRATIVE: CASE EVENT DATE: 20220502
